FAERS Safety Report 7063098-0 (Version None)
Quarter: 2010Q4

REPORT INFORMATION
  Report Type: 
  Country: None (occurrence: None)
  Receive Date: 20101026
  Receipt Date: 20100415
  Transmission Date: 20110411
  Serious: No
  Sender: FDA-Public Use
  Company Number: US-PFIZER INC-2010048164

PATIENT
  Age: 52 Year
  Sex: Male

DRUGS (3)
  1. LIPITOR [Suspect]
     Dosage: 10 MG, UNK
  2. NIASPAN [Suspect]
     Dosage: 500 MG, UNK
  3. OMEGA-3 MARINE TRIGLYCERIDES [Suspect]
     Dosage: 1 G, UNK

REACTIONS (1)
  - MYALGIA [None]
